FAERS Safety Report 19662345 (Version 2)
Quarter: 2021Q3

REPORT INFORMATION
  Report Type: Spontaneous
  Country: IT (occurrence: IT)
  Receive Date: 20210805
  Receipt Date: 20210815
  Transmission Date: 20211014
  Serious: Yes (Other)
  Sender: FDA-Public Use
  Company Number: IT-BIOGEN-2021BI01034945

PATIENT
  Age: 46 Year
  Sex: Male

DRUGS (1)
  1. TECFIDERA [Suspect]
     Active Substance: DIMETHYL FUMARATE
     Indication: MULTIPLE SCLEROSIS
     Route: 048
     Dates: start: 20200514, end: 20200528

REACTIONS (3)
  - Gait disturbance [Recovered/Resolved with Sequelae]
  - Multiple sclerosis relapse [Recovered/Resolved with Sequelae]
  - Drug ineffective [Recovered/Resolved with Sequelae]

NARRATIVE: CASE EVENT DATE: 20210506
